FAERS Safety Report 10687835 (Version 1)
Quarter: 2014Q4

REPORT INFORMATION
  Report Type: Report from Study
  Country: JP (occurrence: None)
  Receive Date: 20141230
  Receipt Date: 20141230
  Transmission Date: 20150529
  Serious: Yes (Other)
  Sender: FDA-Public Use
  Company Number: 2008JP005023

PATIENT
  Age: 49 Year
  Sex: Female
  Weight: 68 kg

DRUGS (31)
  1. ACECOL [Suspect]
     Active Substance: TEMOCAPRIL HYDROCHLORIDE
     Indication: LUPUS NEPHRITIS
     Route: 048
     Dates: start: 20080214, end: 20110126
  2. FERROMIA (SODIUM FERROUS CITRATE) [Concomitant]
  3. ZESULAN (MEQUITAZINE) [Concomitant]
  4. NEORAL [Concomitant]
     Active Substance: CYCLOSPORINE
  5. ADOFEED (FLURBIPROFEN) [Concomitant]
  6. PERSANTIN-L (DIPYRIDAMOLE) [Concomitant]
  7. FOSAMAC (ALENDRONATE SODIUM) [Concomitant]
  8. AZUNOL (SODIUM GUALENATE) [Concomitant]
  9. BUFFERIN [Suspect]
     Active Substance: ASPIRIN
     Indication: PRODUCT USED FOR UNKNOWN INDICATION
     Route: 048
     Dates: end: 20080826
  10. DEXALTIN (DEXAMETHASONE) [Concomitant]
  11. GASTER [Concomitant]
     Active Substance: FAMOTIDINE
  12. GLAKAY (MENATETRENONE) [Concomitant]
  13. AZUNOL ST (AZULENE SULFONATE SODIUM) [Concomitant]
  14. AMLODIN (AMLODIPINE BESILATE) [Concomitant]
  15. PROGRAF [Suspect]
     Active Substance: TACROLIMUS\TACROLIMUS ANHYDROUS
     Indication: LUPUS NEPHRITIS
     Route: 048
     Dates: start: 20071003, end: 20071023
  16. BAKTAR (SULFAMETHOXAZOLE, TRIMETHOPRIM) TABLET [Suspect]
     Active Substance: SULFAMETHOXAZOLE\TRIMETHOPRIM
     Indication: PRODUCT USED FOR UNKNOWN INDICATION
     Dosage: 2G/MONDAY, THURSDAY
     Route: 048
     Dates: end: 20080104
  17. ALFAROL [Concomitant]
     Active Substance: ALFACALCIDOL
  18. DERMOVATE (CLOBETASOL PROPIONATE) [Concomitant]
  19. MARZULENE-S (SODIUM AZULENE SULFONATE _ L-GLUTAMINE) [Concomitant]
  20. NU-LOTAN (LOSARTAN POTASSIUM) [Concomitant]
  21. BREDININ (MIZORIBINE) [Concomitant]
     Active Substance: MIZORIBINE
  22. ONEALFA [Concomitant]
     Active Substance: ALFACALCIDOL
  23. PREDNISOLONE (PREDNISOLONE) PER ORAL NOS [Suspect]
     Active Substance: PREDNISOLONE
     Indication: LUPUS NEPHRITIS
     Route: 048
     Dates: end: 20071024
  24. PREDNISOLONE (PREDNISOLONE) [Concomitant]
     Active Substance: PREDNISOLONE
  25. PARIET (SODIUM RABEPRAZOLE) [Concomitant]
  26. RINDERON-VG (BETAMETHASONE VALERATE_GENTAMICIN [Concomitant]
  27. SELBEX (TEPRENONE) [Concomitant]
     Active Substance: TEPRENONE
  28. LASIX [Concomitant]
     Active Substance: FUROSEMIDE
  29. IMURAN (AZITHIOPRINE) [Concomitant]
  30. MUCOSTA (REBAMIPIDE) [Concomitant]
  31. RABEPRAZOLE SODIUM (RABEPRAZOLE SODIUM) [Concomitant]
     Active Substance: RABEPRAZOLE SODIUM

REACTIONS (13)
  - Condition aggravated [None]
  - Hepatic function abnormal [None]
  - Gastritis [None]
  - Oedema peripheral [None]
  - Conjunctival haemorrhage [None]
  - Intentional product misuse [None]
  - Headache [None]
  - Haemorrhage subcutaneous [None]
  - Hypertension [None]
  - Systemic lupus erythematosus [None]
  - Anaemia [None]
  - Musculoskeletal stiffness [None]
  - White blood cell count decreased [None]

NARRATIVE: CASE EVENT DATE: 20071024
